FAERS Safety Report 6972909-6 (Version None)
Quarter: 2010Q3

REPORT INFORMATION
  Report Type: 
  Country: None (occurrence: None)
  Receive Date: 20100909
  Receipt Date: 20100831
  Transmission Date: 20110219
  Serious: Yes (Other)
  Sender: FDA-Public Use
  Company Number: US-PFIZER INC-2010110544

PATIENT
  Sex: Female
  Weight: 100 kg

DRUGS (1)
  1. ZITHROMAX [Suspect]
     Indication: PHARYNGITIS STREPTOCOCCAL
     Dosage: UNK MG, 1X/DAY
     Route: 048
     Dates: start: 20100728, end: 20100730

REACTIONS (3)
  - ABDOMINAL DISCOMFORT [None]
  - AGEUSIA [None]
  - ANOSMIA [None]
